FAERS Safety Report 25488443 (Version 1)
Quarter: 2025Q2

REPORT INFORMATION
  Report Type: Spontaneous
  Country: GB (occurrence: None)
  Receive Date: 20250627
  Receipt Date: 20250627
  Transmission Date: 20250717
  Serious: Yes (Other)
  Sender: ORION
  Company Number: GB-SANDOZ-SDZ2025GB044693

PATIENT
  Age: 34 Year
  Sex: Female

DRUGS (2)
  1. METHOTREXATE [Suspect]
     Active Substance: METHOTREXATE
     Indication: Product used for unknown indication
  2. PYZCHIVA [Suspect]
     Active Substance: USTEKINUMAB-TTWE
     Indication: Psoriasis

REACTIONS (5)
  - Ectopic pregnancy [Unknown]
  - Drug ineffective [Unknown]
  - Menstrual disorder [Unknown]
  - Anaemia [Unknown]
  - Exposure during pregnancy [Unknown]
